FAERS Safety Report 20744323 (Version 2)
Quarter: 2022Q2

REPORT INFORMATION
  Report Type: Spontaneous
  Country: JP (occurrence: JP)
  Receive Date: 20220425
  Receipt Date: 20220505
  Transmission Date: 20220721
  Serious: Yes (Other)
  Sender: FDA-Public Use
  Company Number: JP-TEVA-2022-JP-2023611

PATIENT
  Age: 34 Year
  Sex: Female

DRUGS (4)
  1. THIAMINE [Suspect]
     Active Substance: THIAMINE
     Indication: Vitamin B1 deficiency
     Dosage: TRANSFUSION
     Route: 065
  2. THIAMINE [Suspect]
     Active Substance: THIAMINE
     Indication: Hyperemesis gravidarum
  3. DIAZEPAM [Suspect]
     Active Substance: DIAZEPAM
     Indication: Generalised tonic-clonic seizure
     Route: 065
  4. DEXTROSE [Suspect]
     Active Substance: DEXTROSE
     Indication: Hypoglycaemia
     Route: 042

REACTIONS (2)
  - Abortion spontaneous [Unknown]
  - Maternal exposure during pregnancy [Unknown]
